FAERS Safety Report 9010066 (Version 1)
Quarter: 2013Q1

REPORT INFORMATION
  Report Type: Spontaneous
  Country: US (occurrence: US)
  Receive Date: 20130111
  Receipt Date: 20130111
  Transmission Date: 20140127
  Serious: Yes (Other)
  Sender: FDA-Public Use
  Company Number: US-MERCK-1301USA001482

PATIENT
  Age: 71 Year
  Sex: Male

DRUGS (8)
  1. MONTELUKAST SODIUM [Suspect]
     Dosage: 10 MG, NOCT
     Route: 065
  2. SALBUTAMOL [Suspect]
     Dosage: 100 MICROGRAM, AS REQUIRED
     Route: 055
  3. SPIRIVA [Suspect]
     Dosage: INHALATION
     Route: 055
  4. QUININE BISULFATE [Suspect]
     Dosage: 300 MG, AS REQUIRED
     Route: 065
  5. OXYGEN [Suspect]
     Route: 065
  6. SALMETEROL XINAFOATE [Suspect]
     Dosage: INHALATION
     Route: 055
  7. SERETIDE [Suspect]
     Dosage: 2 PUFF BID, INHALATION
     Route: 055
  8. BECLOMETHASONE DIPROPIONATE [Suspect]
     Dosage: 200 MICROGRAM, AS REQUIRED
     Route: 065

REACTIONS (2)
  - Chronic obstructive pulmonary disease [Unknown]
  - Diarrhoea [Unknown]
